FAERS Safety Report 14686044 (Version 1)
Quarter: 2018Q1

REPORT INFORMATION
  Report Type: Spontaneous
  Country: AU (occurrence: AU)
  Receive Date: 20180327
  Receipt Date: 20180327
  Transmission Date: 20180509
  Serious: Yes (Other)
  Sender: FDA-Public Use
  Company Number: AU-TAKEDA-2017TUS014249

PATIENT
  Sex: Male

DRUGS (8)
  1. ADENURIC [Suspect]
     Active Substance: FEBUXOSTAT
     Indication: GOUTY TOPHUS
     Dosage: 40 MG, QD
     Route: 048
     Dates: start: 201705, end: 20170621
  2. ADENURIC [Suspect]
     Active Substance: FEBUXOSTAT
     Dosage: 40 MG, QD
     Route: 065
     Dates: start: 201802
  3. NOTEN [Concomitant]
     Active Substance: ATENOLOL
     Dosage: 25 MG, BID
     Route: 065
  4. ACETAMINOPHEN AND CODEINE [Suspect]
     Active Substance: ACETAMINOPHEN\CODEINE PHOSPHATE
     Indication: PRODUCT USED FOR UNKNOWN INDICATION
     Dosage: UNK
     Route: 065
  5. RANITIDINE. [Concomitant]
     Active Substance: RANITIDINE
     Dosage: 300 MG, QD
     Route: 065
  6. PANAMAX                            /00020001/ [Concomitant]
     Dosage: UNK
     Route: 065
  7. DICLOFENAC [Suspect]
     Active Substance: DICLOFENAC
     Indication: PRODUCT USED FOR UNKNOWN INDICATION
     Dosage: 50 MG, QD
     Route: 065
  8. ADENURIC [Suspect]
     Active Substance: FEBUXOSTAT
     Dosage: 40 MG, QD
     Route: 065
     Dates: start: 201706, end: 201706

REACTIONS (9)
  - Gingival recession [Unknown]
  - Ageusia [Unknown]
  - Renal impairment [Unknown]
  - Limb discomfort [Unknown]
  - Pain in extremity [Unknown]
  - Gravitational oedema [Unknown]
  - Peripheral vascular disorder [Unknown]
  - Gouty tophus [Recovering/Resolving]
  - Gait disturbance [Unknown]

NARRATIVE: CASE EVENT DATE: 2017
